FAERS Safety Report 9281243 (Version 1)
Quarter: 2013Q2

REPORT INFORMATION
  Report Type: Spontaneous
  Country: PT (occurrence: PT)
  Receive Date: 20130509
  Receipt Date: 20130509
  Transmission Date: 20140414
  Serious: Yes (Other)
  Sender: FDA-Public Use
  Company Number: PT-BAYER-2013-054141

PATIENT
  Age: 38 Year
  Sex: Female

DRUGS (1)
  1. GADOVIST [Suspect]
     Indication: NUCLEAR MAGNETIC RESONANCE IMAGING
     Dosage: UNK
     Route: 065
     Dates: start: 20101202, end: 20101202

REACTIONS (5)
  - Rash maculo-papular [Recovered/Resolved]
  - Dyspnoea [Recovered/Resolved]
  - Pruritus [Recovered/Resolved]
  - Presyncope [Recovered/Resolved]
  - Wheezing [Recovered/Resolved]
